FAERS Safety Report 16576889 (Version 2)
Quarter: 2019Q3

REPORT INFORMATION
  Report Type: Spontaneous
  Country: JP (occurrence: JP)
  Receive Date: 20190716
  Receipt Date: 20190826
  Transmission Date: 20191004
  Serious: Yes (Hospitalization, Other)
  Sender: FDA-Public Use
  Company Number: JP-AMGEN-JPNSP2019111764

PATIENT
  Age: 89 Year
  Sex: Female
  Weight: 46 kg

DRUGS (7)
  1. BAYASPIRIN [Concomitant]
     Active Substance: ASPIRIN
     Dosage: 1 UNK, QD
  2. ROSUVASTATIN. [Concomitant]
     Active Substance: ROSUVASTATIN
     Dosage: 1 UNK, QD
  3. RABEPRAZOLE [Concomitant]
     Active Substance: RABEPRAZOLE
     Dosage: 1 UNK, QD
  4. CALCIUM ASPARTATE [Concomitant]
     Active Substance: CALCIUM ASPARTATE
     Dosage: 3 UNK, TID
  5. EDIROL [Concomitant]
     Active Substance: ELDECALCITOL
     Dosage: 0.75 MICROGRAM, QD
  6. EVENITY [Suspect]
     Active Substance: ROMOSOZUMAB-AQQG
     Indication: OSTEOPOROSIS
     Dosage: 210 MILLIGRAM
     Route: 058
     Dates: start: 2019
  7. DONEPEZIL. [Concomitant]
     Active Substance: DONEPEZIL
     Dosage: 1 UNK, QD

REACTIONS (2)
  - Fall [Unknown]
  - Femoral neck fracture [Unknown]

NARRATIVE: CASE EVENT DATE: 20190708
